FAERS Safety Report 18418399 (Version 1)
Quarter: 2020Q4

REPORT INFORMATION
  Report Type: Spontaneous
  Country: US (occurrence: US)
  Receive Date: 20201023
  Receipt Date: 20201023
  Transmission Date: 20210114
  Serious: Yes (Life-Threatening, Hospitalization, Other)
  Sender: FDA-Public Use
  Company Number: US-009507513-2010USA006179

PATIENT
  Age: 63 Year
  Sex: Female
  Weight: 116 kg

DRUGS (21)
  1. NORVASC [Concomitant]
     Active Substance: AMLODIPINE BESYLATE
     Dosage: UNK
     Dates: start: 20200107
  2. ALLEGRA [Concomitant]
     Active Substance: FEXOFENADINE HYDROCHLORIDE
     Dosage: UNK
     Dates: end: 20200904
  3. ULTRAM [Concomitant]
     Active Substance: TRAMADOL HYDROCHLORIDE
     Dosage: UNK
     Dates: start: 20201002
  4. ASCORBIC ACID. [Concomitant]
     Active Substance: ASCORBIC ACID
  5. FLONASE [Concomitant]
     Active Substance: FLUTICASONE PROPIONATE
     Dosage: UNK
     Dates: start: 20200207, end: 20200904
  6. PAXIL [Concomitant]
     Active Substance: PAROXETINE HYDROCHLORIDE
     Dosage: UNK
     Dates: start: 20200305
  7. KEYTRUDA [Suspect]
     Active Substance: PEMBROLIZUMAB
     Dosage: 200 MILLIGRAM, Q3W X 30 V1.0
     Route: 042
     Dates: start: 20190828, end: 20200728
  8. ANORO ELLIPTA [Concomitant]
     Active Substance: UMECLIDINIUM BROMIDE\VILANTEROL TRIFENATATE
     Dosage: UNK
     Dates: start: 20200803, end: 20200904
  9. ASPIRIN. [Concomitant]
     Active Substance: ASPIRIN
  10. VICTOZA [Concomitant]
     Active Substance: LIRAGLUTIDE
     Dosage: UNK
     Dates: start: 20200903, end: 20200904
  11. ZOFRAN [Concomitant]
     Active Substance: ONDANSETRON HYDROCHLORIDE
     Dosage: UNK
  12. PREDNISONE. [Concomitant]
     Active Substance: PREDNISONE
     Dosage: UNK
     Dates: start: 20200913
  13. CHOLECALCIFEROL [Concomitant]
     Active Substance: CHOLECALCIFEROL
  14. ZOCOR [Concomitant]
     Active Substance: SIMVASTATIN
     Dosage: UNK
     Dates: start: 20200903, end: 20200904
  15. BASAGLAR [Concomitant]
     Active Substance: INSULIN GLARGINE
     Dosage: UNK
     Dates: start: 20200107
  16. SYNTHROID [Concomitant]
     Active Substance: LEVOTHYROXINE SODIUM
     Dosage: 175 UNK
     Dates: start: 20191009
  17. LOMOTIL [Concomitant]
     Active Substance: ATROPINE SULFATE\DIPHENOXYLATE HYDROCHLORIDE
     Dosage: UNK
  18. ENFORTUMAB VEDOTIN [Suspect]
     Active Substance: ENFORTUMAB VEDOTIN
     Indication: NON-SMALL CELL LUNG CANCER
     Dosage: 148.75 MG, CYCLIC (DAYS 1,8, 15 OF 28 DAY CYCLE)
     Route: 042
     Dates: start: 20200819, end: 20200902
  19. CYTOMEL [Concomitant]
     Active Substance: LIOTHYRONINE SODIUM
     Dosage: UNK
     Dates: start: 20191107
  20. GLUCOPHAGE [Concomitant]
     Active Substance: METFORMIN HYDROCHLORIDE
     Dosage: UNK
     Dates: start: 20200903, end: 20200904
  21. LOPRESSOR [Concomitant]
     Active Substance: METOPROLOL TARTRATE
     Dosage: UNK
     Dates: start: 20200903, end: 20200904

REACTIONS (28)
  - Mental status changes [Recovered/Resolved]
  - Diabetes mellitus inadequate control [Unknown]
  - Pneumonia [Recovering/Resolving]
  - Malignant neoplasm progression [Unknown]
  - Aortic arteriosclerosis [Unknown]
  - Mass [Unknown]
  - Aortic stenosis [Unknown]
  - Pulmonary oedema [Unknown]
  - Diarrhoea [Unknown]
  - Hyponatraemia [Unknown]
  - Hypersomnia [Unknown]
  - Hyperosmolar state [Unknown]
  - Pneumonitis [Recovering/Resolving]
  - Mitral valve stenosis [Unknown]
  - Pain in extremity [Unknown]
  - Hyperglycaemia [Recovering/Resolving]
  - Lymphadenopathy [Unknown]
  - Cardiomegaly [Unknown]
  - Delirium [Unknown]
  - Hypokalaemia [Unknown]
  - Oedema peripheral [Unknown]
  - Hypoglycaemia [Not Recovered/Not Resolved]
  - Fluid intake reduced [Unknown]
  - Acute kidney injury [Recovered/Resolved]
  - Urinary tract infection [Unknown]
  - Pulmonary congestion [Unknown]
  - Decreased appetite [Unknown]
  - Poor venous access [Unknown]

NARRATIVE: CASE EVENT DATE: 20200715
